FAERS Safety Report 7828389-1 (Version None)
Quarter: 2011Q4

REPORT INFORMATION
  Report Type: 
  Country: None (occurrence: None)
  Receive Date: 20111020
  Receipt Date: 20111018
  Transmission Date: 20120403
  Serious: No
  Sender: FDA-Public Use
  Company Number: US-PFIZER INC-2011250951

PATIENT
  Sex: Male
  Weight: 81.633 kg

DRUGS (2)
  1. EFFEXOR [Suspect]
     Indication: VERTIGO
     Dosage: 25 MG, UNK
  2. EFFEXOR [Suspect]
     Dosage: 12.5 MG, 2X/DAY
     Dates: end: 20111014

REACTIONS (2)
  - DIZZINESS [None]
  - NAUSEA [None]
